FAERS Safety Report 23647976 (Version 3)
Quarter: 2024Q2

REPORT INFORMATION
  Report Type: Report from Study
  Country: CL (occurrence: CL)
  Receive Date: 20240319
  Receipt Date: 20240626
  Transmission Date: 20240715
  Serious: Yes (Other)
  Sender: FDA-Public Use
  Company Number: CL-JNJFOC-20240345543

PATIENT
  Age: 55 Year
  Sex: Female

DRUGS (1)
  1. SIMPONI [Suspect]
     Active Substance: GOLIMUMAB
     Indication: Psoriatic arthropathy
     Dosage: LAST DRUG APPLICATION: 11-FEB-2024;?V2: LAST DRUG APPLICATION WAS ON 11-JUN-2024
     Route: 058
     Dates: start: 20230912

REACTIONS (4)
  - Pneumonia [Recovered/Resolved]
  - Carotid artery occlusion [Unknown]
  - Visual impairment [Unknown]
  - Headache [Not Recovered/Not Resolved]

NARRATIVE: CASE EVENT DATE: 20240302
